FAERS Safety Report 6567894-5 (Version None)
Quarter: 2010Q1

REPORT INFORMATION
  Report Type: 
  Country: None (occurrence: None)
  Receive Date: 20100203
  Receipt Date: 20100122
  Transmission Date: 20100710
  Serious: Yes (Other)
  Sender: FDA-Public Use
  Company Number: PHHY2010FR03792

PATIENT
  Age: 79 Year
  Sex: Male

DRUGS (4)
  1. EUCREAS [Suspect]
     Indication: TYPE 2 DIABETES MELLITUS
     Dosage: 50/1000 MG
     Dates: start: 20091110
  2. TAHOR [Concomitant]
     Dosage: UNK
  3. PLAVIX [Concomitant]
     Dosage: UNK
  4. AMLOR [Concomitant]

REACTIONS (1)
  - HYPERKALAEMIA [None]
